FAERS Safety Report 8841265 (Version 1)
Quarter: 2012Q4

REPORT INFORMATION
  Report Type: 
  Country: US (occurrence: US)
  Receive Date: 20121015
  Receipt Date: 20121015
  Transmission Date: 20130627
  Serious: No
  Sender: FDA-Public Use
  Company Number: US-009507513-1210USA001648

PATIENT
  Age: 50 Year
  Sex: Male

DRUGS (12)
  1. NASONEX [Suspect]
     Indication: RHINITIS SEASONAL
     Dosage: 1 puff per nostril once a day
     Dates: start: 201208, end: 201208
  2. NASONEX [Suspect]
     Dosage: 2 puffs per nostril, twice a day
     Route: 055
     Dates: start: 201208, end: 201209
  3. NASONEX [Suspect]
     Dosage: 2 puffs per nostril, once a day
     Dates: start: 201209
  4. BECONASE [Concomitant]
  5. AFRIN (SODIUM CHLORIDE) [Concomitant]
     Dosage: 1 puf per nostril
     Route: 055
     Dates: start: 20120822, end: 20120826
  6. NASALCROM [Concomitant]
  7. SUDAFED [Concomitant]
     Dosage: UNK
     Route: 048
  8. CLARITIN 24 HOUR [Concomitant]
  9. CLARITIN-D 24 HOUR [Concomitant]
  10. PATANASE [Concomitant]
     Dosage: 2 puffs
  11. PREDNISONE [Concomitant]
     Dosage: 20 mg, UNK
  12. ZITHROMAX [Concomitant]

REACTIONS (4)
  - Hypogeusia [Unknown]
  - Laryngitis [Unknown]
  - Hyposmia [Unknown]
  - Cough [Unknown]
